FAERS Safety Report 23113329 (Version 1)
Quarter: 2023Q4

REPORT INFORMATION
  Report Type: Spontaneous
  Country: US (occurrence: US)
  Receive Date: 20231027
  Receipt Date: 20231027
  Transmission Date: 20240110
  Serious: Yes (Death, Life-Threatening, Other)
  Sender: FDA-Public Use
  Company Number: US-AMGEN-USASP2023188307

PATIENT

DRUGS (6)
  1. EPOETIN ALFA [Suspect]
     Active Substance: ERYTHROPOIETIN
     Indication: Anaemia
     Dosage: UNK
     Route: 065
  2. EPOETIN ALFA [Suspect]
     Active Substance: ERYTHROPOIETIN
     Indication: Chronic kidney disease
  3. DARBEPOETIN ALFA [Suspect]
     Active Substance: DARBEPOETIN ALFA
     Indication: Anaemia
     Dosage: UNK
     Route: 065
  4. DARBEPOETIN ALFA [Suspect]
     Active Substance: DARBEPOETIN ALFA
     Indication: Chronic kidney disease
  5. ROXADUSTAT [Suspect]
     Active Substance: ROXADUSTAT
     Indication: Anaemia
     Dosage: UNK
     Route: 048
  6. ROXADUSTAT [Suspect]
     Active Substance: ROXADUSTAT
     Indication: Chronic kidney disease

REACTIONS (26)
  - Death [Fatal]
  - Adverse event [Fatal]
  - COVID-19 pneumonia [Unknown]
  - Acute myocardial infarction [Unknown]
  - Bradycardia [Unknown]
  - Cardiac failure congestive [Unknown]
  - Pneumonia [Unknown]
  - Cellulitis [Unknown]
  - Hyperkalaemia [Unknown]
  - Acute respiratory failure [Unknown]
  - Anaemia [Unknown]
  - Pleural effusion [Unknown]
  - Urinary tract infection [Unknown]
  - Diarrhoea [Unknown]
  - Constipation [Unknown]
  - COVID-19 [Unknown]
  - Hypervolaemia [Unknown]
  - Pain in extremity [Unknown]
  - Dyspnoea [Unknown]
  - Fall [Unknown]
  - Arteriovenous fistula site complication [Unknown]
  - Decreased appetite [Unknown]
  - Back pain [Unknown]
  - Hypotension [Unknown]
  - Nausea [Unknown]
  - Headache [Unknown]
